FAERS Safety Report 7040502-5 (Version None)
Quarter: 2010Q4

REPORT INFORMATION
  Report Type: 
  Country: None (occurrence: None)
  Receive Date: 20101008
  Receipt Date: 20101008
  Transmission Date: 20110411
  Serious: Yes (Hospitalization)
  Sender: FDA-Public Use
  Company Number: None

PATIENT
  Age: 79 Year
  Sex: Male
  Weight: 72.1219 kg

DRUGS (1)
  1. MELOXICAM [Suspect]
     Indication: ARTHROPATHY
     Dosage: 7.5 MG 1 DAILY MOUTH
     Route: 048
     Dates: start: 20100430

REACTIONS (1)
  - DUODENAL ULCER HAEMORRHAGE [None]
